FAERS Safety Report 20549917 (Version 1)
Quarter: 2022Q1

REPORT INFORMATION
  Report Type: Spontaneous
  Country: US (occurrence: US)
  Receive Date: 20220304
  Receipt Date: 20220304
  Transmission Date: 20220424
  Serious: Yes (Disabling, Other)
  Sender: FDA-Public Use
  Company Number: US-PURDUE-USA-2020-0282837

PATIENT
  Sex: Male

DRUGS (2)
  1. OXYCONTIN [Suspect]
     Active Substance: OXYCODONE HYDROCHLORIDE
     Indication: Product used for unknown indication
     Dosage: 80 MG, UNK
     Route: 048
     Dates: start: 1997, end: 2004
  2. MORPHINE SULFATE [Suspect]
     Active Substance: MORPHINE SULFATE
     Indication: Pain
     Dosage: 30 MG, Q2H (6-8 TABLETS)
     Route: 065
     Dates: start: 1997, end: 2004

REACTIONS (5)
  - Suicide attempt [Unknown]
  - Drug dependence [Unknown]
  - Abnormal behaviour [Unknown]
  - Mental disorder [Unknown]
  - General physical health deterioration [Unknown]
